FAERS Safety Report 15666708 (Version 1)
Quarter: 2018Q4

REPORT INFORMATION
  Report Type: Spontaneous
  Country: US (occurrence: US)
  Receive Date: 20181128
  Receipt Date: 20181128
  Transmission Date: 20190205
  Serious: No
  Sender: FDA-Public Use
  Company Number: US-ROCHE-2120341

PATIENT
  Sex: Female
  Weight: 56.75 kg

DRUGS (1)
  1. OCREVUS [Suspect]
     Active Substance: OCRELIZUMAB
     Indication: PRODUCT USED FOR UNKNOWN INDICATION
     Dosage: ONGOING: YES
     Route: 065
     Dates: start: 201803

REACTIONS (3)
  - Immunosuppression [Unknown]
  - Fatigue [Unknown]
  - Weight increased [Unknown]
